FAERS Safety Report 10900174 (Version 1)
Quarter: 2015Q1

REPORT INFORMATION
  Report Type: Report from Study
  Country: US (occurrence: US)
  Receive Date: 20150310
  Receipt Date: 20150310
  Transmission Date: 20150721
  Serious: Yes (Death, Other)
  Sender: FDA-Public Use
  Company Number: US-ASTRAZENECA-2015SE21154

PATIENT
  Age: 30213 Day
  Sex: Male
  Weight: 56.7 kg

DRUGS (3)
  1. TRIAVEL [Concomitant]
     Indication: THERMAL BURN
     Route: 048
  2. NEXIUM [Suspect]
     Active Substance: ESOMEPRAZOLE MAGNESIUM
     Indication: GASTROOESOPHAGEAL REFLUX DISEASE
     Route: 048
  3. XANAX [Concomitant]
     Active Substance: ALPRAZOLAM
     Indication: NERVOUSNESS
     Route: 048

REACTIONS (9)
  - Weight decreased [Unknown]
  - Adverse event [Unknown]
  - Nervousness [Unknown]
  - Dementia [Unknown]
  - Dementia Alzheimer^s type [Unknown]
  - Parkinson^s disease [Unknown]
  - Death [Fatal]
  - Prostate cancer [Unknown]
  - Mental disorder [Unknown]

NARRATIVE: CASE EVENT DATE: 20130116
